FAERS Safety Report 11215556 (Version 1)
Quarter: 2015Q2

REPORT INFORMATION
  Report Type: Spontaneous
  Country: TW (occurrence: TW)
  Receive Date: 20150624
  Receipt Date: 20150624
  Transmission Date: 20150821
  Serious: Yes (Death)
  Sender: FDA-Public Use
  Company Number: TW-CIPLA LTD.-2015TW04759

PATIENT

DRUGS (2)
  1. GEMCITABINE [Suspect]
     Active Substance: GEMCITABINE\GEMCITABINE HYDROCHLORIDE
     Indication: NASOPHARYNGEAL CANCER
     Dosage: 1250 MG/M2, ON DAYS 1 AND 8 AT 3 WEEK INTERVAL
     Route: 065
  2. CISPLATIN. [Suspect]
     Active Substance: CISPLATIN
     Indication: NASOPHARYNGEAL CANCER
     Dosage: 75 MG/M2, ON DAY 1, AT A 3 WEEK INTERVAL
     Route: 065

REACTIONS (2)
  - Pneumonia aspiration [Fatal]
  - Sepsis [Fatal]
